FAERS Safety Report 8821841 (Version 1)
Quarter: 2012Q4

REPORT INFORMATION
  Report Type: 
  Country: None (occurrence: US)
  Receive Date: 20121002
  Receipt Date: 20121002
  Transmission Date: 20130627
  Serious: Yes (Other)
  Sender: FDA-Public Use
  Company Number: -MYLANLABS-2012S1019682

PATIENT
  Age: 69 Year
  Sex: Male

DRUGS (1)
  1. LITHIUM [Suspect]
     Route: 065

REACTIONS (4)
  - Nephropathy [Unknown]
  - Renal failure chronic [Unknown]
  - Nephrogenic diabetes insipidus [Unknown]
  - Renal cyst [Unknown]
